FAERS Safety Report 8309136 (Version 2)
Quarter: 2012Q4

REPORT INFORMATION
  Report Type: Report from Study
  Country: US (occurrence: US)
  Receive Date: 20111222
  Receipt Date: 20121029
  Transmission Date: 20130627
  Serious: Yes (Hospitalization)
  Sender: FDA-Public Use
  Company Number: US-ROCHE-1023601

PATIENT
  Age: 73 Year
  Sex: Male
  Weight: 85.44 kg

DRUGS (1)
  1. RITUXIMAB [Suspect]
     Indication: CHRONIC LYMPHOCYTIC LEUKAEMIA
     Route: 065

REACTIONS (8)
  - Pyrexia [Recovered/Resolved]
  - Rash [Recovered/Resolved]
  - Systemic inflammatory response syndrome [Recovered/Resolved]
  - Diabetic nephropathy [Recovered/Resolved]
  - Hypertensive heart disease [Recovered/Resolved]
  - Renal failure chronic [Recovered/Resolved]
  - Anaemia [Recovered/Resolved]
  - Thrombocytopenia [Recovered/Resolved]
